FAERS Safety Report 8212121-6 (Version None)
Quarter: 2012Q1

REPORT INFORMATION
  Report Type: 
  Country: None (occurrence: None)
  Receive Date: 20120315
  Receipt Date: 20120313
  Transmission Date: 20120608
  Serious: Yes (Life-Threatening, Other)
  Sender: FDA-Public Use
  Company Number: PHHY2012AU022108

PATIENT
  Sex: Female

DRUGS (1)
  1. ZOLEDRONOC ACID [Suspect]
     Indication: OSTEOPOROSIS
     Dosage: 5 MG, UNK
     Route: 042
     Dates: start: 20110420

REACTIONS (5)
  - FEELING ABNORMAL [None]
  - HEART RATE IRREGULAR [None]
  - SWOLLEN TONGUE [None]
  - GINGIVAL BLEEDING [None]
  - GINGIVAL ULCERATION [None]
